FAERS Safety Report 6922134-X (Version None)
Quarter: 2010Q3

REPORT INFORMATION
  Report Type: 
  Country: None (occurrence: None)
  Receive Date: 20100812
  Receipt Date: 20100806
  Transmission Date: 20110219
  Serious: Yes (Other)
  Sender: FDA-Public Use
  Company Number: JP-GENENTECH-305134

PATIENT
  Age: 78 Year
  Sex: Male

DRUGS (8)
  1. GRTPA [Suspect]
     Indication: CEREBRAL INFARCTION
     Dosage: 30.2 ML, UNK
     Route: 042
     Dates: start: 20100625, end: 20100625
  2. RADICUT [Concomitant]
     Indication: PRODUCT USED FOR UNKNOWN INDICATION
     Dosage: 60 MG, UNK
     Route: 041
     Dates: start: 20100625, end: 20100630
  3. HEPARIN SODIUM [Concomitant]
     Indication: PRODUCT USED FOR UNKNOWN INDICATION
     Dosage: UNK
     Dates: start: 20100626, end: 20100628
  4. WARFARIN [Concomitant]
     Indication: PRODUCT USED FOR UNKNOWN INDICATION
     Dosage: UNK
     Route: 048
     Dates: start: 20100705
  5. ASPIRIN [Concomitant]
     Indication: PRODUCT USED FOR UNKNOWN INDICATION
     Dosage: UNK
     Route: 048
     Dates: start: 20100705
  6. CILOSTAZOL [Concomitant]
     Indication: PRODUCT USED FOR UNKNOWN INDICATION
     Dosage: UNK
     Route: 048
     Dates: start: 20100706
  7. VASODILATORS NOS [Concomitant]
     Indication: PRODUCT USED FOR UNKNOWN INDICATION
  8. ANTIDIABETIC DRUG NOS [Concomitant]
     Indication: PRODUCT USED FOR UNKNOWN INDICATION
     Route: 048

REACTIONS (1)
  - HAEMOTHORAX [None]
